FAERS Safety Report 9374339 (Version 4)
Quarter: 2013Q4

REPORT INFORMATION
  Report Type: Spontaneous
  Country: AU (occurrence: AU)
  Receive Date: 20130628
  Receipt Date: 20131029
  Transmission Date: 20140711
  Serious: Yes (Other)
  Sender: FDA-Public Use
  Company Number: PHHY2013AU066485

PATIENT
  Sex: 0

DRUGS (1)
  1. CERTICAN [Suspect]
     Indication: OFF LABEL USE
     Dosage: UNK UKN, UNK

REACTIONS (2)
  - Transplant rejection [Unknown]
  - Drug ineffective [Unknown]
